FAERS Safety Report 7656481-3 (Version None)
Quarter: 2011Q3

REPORT INFORMATION
  Report Type: 
  Country: None (occurrence: None)
  Receive Date: 20110804
  Receipt Date: 20100721
  Transmission Date: 20111222
  Serious: No
  Sender: FDA-Public Use
  Company Number: US-BAUSCH-2010BL003962

PATIENT
  Age: 72 Year
  Sex: Female

DRUGS (5)
  1. FEXOFENADINE [Concomitant]
     Indication: HYPERSENSITIVITY
     Route: 048
     Dates: start: 20050101
  2. HORMONES AND RELATED AGENTS [Concomitant]
     Indication: MENOPAUSE
     Dates: start: 19900101
  3. OPCON-A [Suspect]
     Indication: OCULAR HYPERAEMIA
     Route: 047
     Dates: start: 20100720, end: 20100720
  4. SIMVASTATIN [Concomitant]
     Indication: BLOOD CHOLESTEROL INCREASED
     Route: 048
     Dates: start: 20050101
  5. MULTI-VITAMINS [Concomitant]
     Indication: VITAMIN SUPPLEMENTATION
     Route: 048

REACTIONS (2)
  - HEADACHE [None]
  - MYDRIASIS [None]
